FAERS Safety Report 22216862 (Version 1)
Quarter: 2023Q2

REPORT INFORMATION
  Report Type: Spontaneous
  Country: US (occurrence: US)
  Receive Date: 20230417
  Receipt Date: 20230417
  Transmission Date: 20230722
  Serious: No
  Sender: FDA-Public Use
  Company Number: US-APOTEX-2022AP013932

PATIENT
  Sex: Male

DRUGS (1)
  1. MOMETASONE FUROATE [Suspect]
     Active Substance: MOMETASONE FUROATE
     Indication: Hypersensitivity
     Dosage: 2 DOSAGE FORM, QD (1 SPRAY DAILY AT NIGHT IN EACH NOSTRIL)
     Route: 045

REACTIONS (4)
  - Illness [Not Recovered/Not Resolved]
  - Product delivery mechanism issue [Unknown]
  - Product dose omission issue [Unknown]
  - Product cleaning inadequate [Unknown]
